FAERS Safety Report 16107923 (Version 1)
Quarter: 2019Q1

REPORT INFORMATION
  Report Type: Report from Study
  Country: US (occurrence: US)
  Receive Date: 20190322
  Receipt Date: 20190322
  Transmission Date: 20190418
  Serious: Yes (Death, Hospitalization)
  Sender: FDA-Public Use
  Company Number: US-SEATTLE GENETICS-2019SGN00816

PATIENT
  Age: 19 Year
  Sex: Male
  Weight: 66.4 kg

DRUGS (2)
  1. GEMCITABINE [Suspect]
     Active Substance: GEMCITABINE\GEMCITABINE HYDROCHLORIDE
     Indication: HODGKIN^S DISEASE
     Dosage: UNK MG, UNK
     Route: 065
     Dates: start: 20150227, end: 20151013
  2. BRENTUXIMAB VEDOTIN [Suspect]
     Active Substance: BRENTUXIMAB VEDOTIN
     Indication: HODGKIN^S DISEASE
     Dosage: UNK MG, UNK
     Route: 042
     Dates: start: 20150727, end: 20151013

REACTIONS (2)
  - Haemorrhage intracranial [Fatal]
  - Leukaemia [Fatal]

NARRATIVE: CASE EVENT DATE: 20170508
